FAERS Safety Report 12180243 (Version 3)
Quarter: 2016Q2

REPORT INFORMATION
  Report Type: Spontaneous
  Country: US (occurrence: US)
  Receive Date: 20160315
  Receipt Date: 20160523
  Transmission Date: 20160815
  Serious: Yes (Other)
  Sender: FDA-Public Use
  Company Number: US-009507513-1603USA006190

PATIENT
  Age: 11 Year
  Sex: Male
  Weight: 54.42 kg

DRUGS (1)
  1. GRASTEK [Suspect]
     Active Substance: PHLEUM PRATENSE POLLEN
     Indication: SEASONAL ALLERGY
     Dosage: 2800 BAU, QD
     Route: 060
     Dates: start: 20160310

REACTIONS (1)
  - Drug hypersensitivity [Recovered/Resolved]

NARRATIVE: CASE EVENT DATE: 20160310
